FAERS Safety Report 8471754-2 (Version None)
Quarter: 2012Q2

REPORT INFORMATION
  Report Type: 
  Country: None (occurrence: None)
  Receive Date: 20120627
  Receipt Date: 20120614
  Transmission Date: 20120825
  Serious: Yes (Hospitalization)
  Sender: FDA-Public Use
  Company Number: DE-ROCHE-1078810

PATIENT
  Sex: Male

DRUGS (4)
  1. MABTHERA [Suspect]
     Indication: B-CELL LYMPHOMA
     Route: 042
     Dates: start: 20111020
  2. PENTOSTATIN [Suspect]
     Indication: PRODUCT USED FOR UNKNOWN INDICATION
     Route: 042
     Dates: start: 20111020
  3. MABTHERA [Suspect]
     Route: 042
     Dates: start: 20111024
  4. CYCLOPHOSPHAMIDE [Concomitant]
     Route: 042

REACTIONS (2)
  - HAEMARTHROSIS [None]
  - BURSITIS [None]
